FAERS Safety Report 6026430-2 (Version None)
Quarter: 2009Q1

REPORT INFORMATION
  Report Type: 
  Country: None (occurrence: None)
  Receive Date: 20090102
  Receipt Date: 20081219
  Transmission Date: 20090719
  Serious: Yes (Hospitalization, Other)
  Sender: FDA-Public Use
  Company Number: PHHY2008JP29129

PATIENT
  Age: 43 Year
  Sex: Male

DRUGS (8)
  1. NEORAL [Suspect]
     Indication: RENAL TRANSPLANT
     Dosage: 100-250 MG/DAY
     Route: 048
     Dates: start: 20000401
  2. NEORAL [Suspect]
     Dosage: 50 MG, BID
  3. CELLCEPT [Suspect]
     Indication: RENAL TRANSPLANT
     Dosage: 1.5-2 G/DAY
     Route: 048
     Dates: start: 20000401, end: 20080118
  4. PREDONINE [Suspect]
     Indication: RENAL TRANSPLANT
     Dosage: 60 MG/DAY
     Route: 048
     Dates: start: 19991001
  5. PREDONINE [Suspect]
     Dosage: 7.5 MG/DAY
  6. CLARITHROMYCIN [Concomitant]
     Dosage: 200 MG, BID
  7. RIFAMPICIN [Concomitant]
     Dosage: 150 MG, TID
  8. ETHAMBUTOL [Concomitant]
     Dosage: 7.5 MG/DAY

REACTIONS (15)
  - ANGIOTENSIN CONVERTING ENZYME INCREASED [None]
  - ATYPICAL MYCOBACTERIAL INFECTION [None]
  - BLOOD CALCIUM INCREASED [None]
  - DERMATITIS [None]
  - GRANULOMA [None]
  - HYPERVITAMINOSIS [None]
  - KIDNEY TRANSPLANT REJECTION [None]
  - LYSOZYME INCREASED [None]
  - NECROSIS [None]
  - PYREXIA [None]
  - RASH [None]
  - RENAL IMPAIRMENT [None]
  - SARCOIDOSIS [None]
  - TUBULOINTERSTITIAL NEPHRITIS [None]
  - VASCULITIS [None]
